FAERS Safety Report 9034763 (Version 1)
Quarter: 2013Q1

REPORT INFORMATION
  Report Type: Spontaneous
  Country: DK (occurrence: None)
  Receive Date: 20130110
  Receipt Date: 20130110
  Transmission Date: 20140127
  Serious: Yes (Hospitalization)
  Sender: FDA-Public Use
  Company Number: 2013MA000126

PATIENT
  Age: 86 Year
  Sex: Male

DRUGS (7)
  1. SERTRALINE HYDROCHLORIDE TABLETS, 25 MG (BASE) (AELLC) (SERTRALINE) [Suspect]
     Indication: DEPRESSION
     Route: 048
     Dates: start: 20121215, end: 20121227
  2. COUMADIN (NO PREF. NAME) [Suspect]
     Indication: PRODUCT USED FOR UNKNOWN INDICATION
     Dosage: 1 DF
     Route: 048
     Dates: start: 20120101, end: 20121221
  3. AMIODAR (AMIODARONE HYDROCHLORIDE) [Concomitant]
     Indication: PRODUCT USED FOR UNKNOWN INDICATION
     Dosage: 1 DF
     Route: 048
     Dates: start: 20120101, end: 20120127
  4. DIAMOX [Concomitant]
  5. LUVION [Concomitant]
  6. LEVOCARNITINE [Concomitant]
  7. LASIX [Concomitant]

REACTIONS (2)
  - International normalised ratio increased [None]
  - Haematuria [None]
